FAERS Safety Report 6252422-4 (Version None)
Quarter: 2009Q3

REPORT INFORMATION
  Report Type: 
  Country: None (occurrence: None)
  Receive Date: 20090701
  Receipt Date: 20090622
  Transmission Date: 20100115
  Serious: Yes (Death)
  Sender: FDA-Public Use
  Company Number: US-JNJFOC-20090607142

PATIENT
  Age: 49 Year
  Sex: Female

DRUGS (11)
  1. REMICADE [Suspect]
     Indication: DRUG USE FOR UNKNOWN INDICATION
     Dosage: PATIENT RECEIVED A TOTAL OF TWO DOSES
     Route: 042
  2. COUMADIN [Concomitant]
  3. PROTONIX [Concomitant]
  4. MAGNESIUM OXIDE [Concomitant]
  5. POTASSIUM CHLORIDE [Concomitant]
  6. ASCORBIC ACID [Concomitant]
  7. MULTIPLE VITAMINS [Concomitant]
  8. FERROUS SULFATE TAB [Concomitant]
  9. MESALAMINE [Concomitant]
  10. ALBUTEROL [Concomitant]
  11. IPRATROPIUM BROMIDE [Concomitant]

REACTIONS (19)
  - ACIDOSIS [None]
  - ACTIVATED PARTIAL THROMBOPLASTIN TIME PROLONGED [None]
  - BACTERIAL CULTURE POSITIVE [None]
  - BRONCHOPNEUMONIA [None]
  - DEEP VEIN THROMBOSIS [None]
  - ELECTROCARDIOGRAM ST SEGMENT ABNORMAL [None]
  - HYPOTENSION [None]
  - INTERNATIONAL NORMALISED RATIO INCREASED [None]
  - MALAISE [None]
  - MYCOBACTERIUM AVIUM COMPLEX INFECTION [None]
  - OEDEMA [None]
  - OEDEMA PERIPHERAL [None]
  - PNEUMONIA BACTERIAL [None]
  - PNEUMONIA STAPHYLOCOCCAL [None]
  - PROTEUS INFECTION [None]
  - PULMONARY AIR LEAKAGE [None]
  - PULMONARY CAVITATION [None]
  - PULMONARY EMBOLISM [None]
  - PULMONARY INFARCTION [None]
